FAERS Safety Report 21633465 (Version 1)
Quarter: 2022Q4

REPORT INFORMATION
  Report Type: Spontaneous
  Country: US (occurrence: None)
  Receive Date: 20221122
  Receipt Date: 20221122
  Transmission Date: 20230112
  Serious: No
  Sender: FDA-Public Use
  Company Number: None

PATIENT
  Age: 85 Year
  Sex: Male

DRUGS (7)
  1. ABIRATERONE ACETATE [Suspect]
     Active Substance: ABIRATERONE ACETATE
     Indication: Prostate cancer
     Dosage: FREQUENCY : DAILY;?
     Route: 048
  2. ACETAMINOPHEN [Concomitant]
  3. ATORVASTATIN [Concomitant]
  4. HYDROCODONE-ACETAMINOPHEN [Concomitant]
  5. LEVOTHYROXINE SODIUM [Concomitant]
  6. NAPROXEN [Concomitant]
  7. PREDNISONE [Concomitant]

REACTIONS (1)
  - Hospice care [None]
